FAERS Safety Report 7262856-7 (Version None)
Quarter: 2011Q1

REPORT INFORMATION
  Report Type: 
  Country: None (occurrence: None)
  Receive Date: 20110130
  Receipt Date: 20100909
  Transmission Date: 20110831
  Serious: No
  Sender: FDA-Public Use
  Company Number: US-ABBOTT-10P-163-0670734-00

PATIENT
  Sex: Male
  Weight: 77.18 kg

DRUGS (4)
  1. METHOTREXATE [Concomitant]
     Indication: PRODUCT USED FOR UNKNOWN INDICATION
     Route: 050
  2. OPIUM [Concomitant]
     Indication: PRODUCT USED FOR UNKNOWN INDICATION
     Route: 054
  3. RECLAST [Concomitant]
     Indication: OSTEOPOROSIS
  4. HUMIRA [Suspect]
     Indication: RHEUMATOID ARTHRITIS
     Dates: start: 20090101

REACTIONS (8)
  - VAGUS NERVE DISORDER [None]
  - INSOMNIA [None]
  - HIGH DENSITY LIPOPROTEIN DECREASED [None]
  - GASTROINTESTINAL MOTILITY DISORDER [None]
  - VITAMIN D DECREASED [None]
  - DEFAECATION URGENCY [None]
  - DIVERTICULUM [None]
  - BLOOD PRESSURE INCREASED [None]
